FAERS Safety Report 5614270-5 (Version None)
Quarter: 2008Q1

REPORT INFORMATION
  Report Type: 
  Country: None (occurrence: None)
  Receive Date: 20080130
  Receipt Date: 20080121
  Transmission Date: 20080703
  Serious: Yes (Life-Threatening, Other)
  Sender: FDA-Public Use
  Company Number: GXKR2008GB01008

PATIENT
  Age: 40 Year
  Sex: Female
  Weight: 65 kg

DRUGS (5)
  1. FENTANYL [Suspect]
     Dosage: 100 UG
  2. THIOPENTAL SODIUM [Suspect]
     Dosage: 150 MG
  3. ISOFLURANE [Concomitant]
  4. ATRACURIUM BESYLATE [Suspect]
     Dosage: 300 UG/KG,
  5. LABETALOL (NGX) (LABETALOL) UNKNOWN [Suspect]
     Dosage: INTRAVENOUS
     Route: 042

REACTIONS (7)
  - ADRENAL MASS [None]
  - CARDIOVASCULAR DISORDER [None]
  - HYPOTENSION [None]
  - PALLOR [None]
  - PHAEOCHROMOCYTOMA [None]
  - PULMONARY OEDEMA [None]
  - TACHYCARDIA [None]
